FAERS Safety Report 17573137 (Version 1)
Quarter: 2020Q1

REPORT INFORMATION
  Report Type: Spontaneous
  Country: US (occurrence: US)
  Receive Date: 20200323
  Receipt Date: 20200323
  Transmission Date: 20200409
  Serious: No
  Sender: FDA-Public Use
  Company Number: US-009507513-2003USA008218

PATIENT
  Sex: Female

DRUGS (2)
  1. KEYTRUDA [Suspect]
     Active Substance: PEMBROLIZUMAB
     Dosage: UNK
  2. LENVATINIB MESYLATE [Suspect]
     Active Substance: LENVATINIB MESYLATE
     Indication: UTERINE CANCER
     Dosage: 20 MILLIGRAM, QD
     Dates: start: 20191118

REACTIONS (9)
  - Headache [Recovering/Resolving]
  - Hypertension [Recovering/Resolving]
  - Appetite disorder [Unknown]
  - Vomiting [Recovering/Resolving]
  - Fatigue [Not Recovered/Not Resolved]
  - Tachycardia [Recovering/Resolving]
  - Rash [Not Recovered/Not Resolved]
  - Migraine [Recovering/Resolving]
  - Nausea [Recovering/Resolving]
